FAERS Safety Report 18854818 (Version 1)
Quarter: 2021Q1

REPORT INFORMATION
  Report Type: Spontaneous
  Country: IT (occurrence: IT)
  Receive Date: 20210205
  Receipt Date: 20210205
  Transmission Date: 20210420
  Serious: Yes (Hospitalization)
  Sender: FDA-Public Use
  Company Number: IT-ALLERGAN-2105202US

PATIENT
  Sex: Male

DRUGS (1)
  1. CEFTAROLINE FOSAMIL ? BP [Suspect]
     Active Substance: CEFTAROLINE FOSAMIL
     Indication: PNEUMONITIS
     Dosage: UNK
     Route: 042
     Dates: start: 20210105, end: 20210105

REACTIONS (1)
  - Dermatitis allergic [Recovered/Resolved]

NARRATIVE: CASE EVENT DATE: 20210105
